FAERS Safety Report 20137613 (Version 1)
Quarter: 2021Q4

REPORT INFORMATION
  Report Type: Spontaneous
  Country: US (occurrence: None)
  Receive Date: 20211201
  Receipt Date: 20211201
  Transmission Date: 20220303
  Serious: No
  Sender: FDA-Public Use
  Company Number: 2021A807465

PATIENT
  Age: 28862 Day
  Sex: Female
  Weight: 62.1 kg

DRUGS (1)
  1. SYMBICORT [Suspect]
     Active Substance: BUDESONIDE\FORMOTEROL FUMARATE DIHYDRATE
     Indication: Chronic obstructive pulmonary disease
     Dosage: 160 MCG/4.5 MCG, TWO PUFFS TWICE DAILY
     Route: 055

REACTIONS (6)
  - Dyspnoea [Unknown]
  - Lung disorder [Unknown]
  - Cardiac discomfort [Not Recovered/Not Resolved]
  - Illness [Unknown]
  - Nerve injury [Unknown]
  - Crying [Unknown]

NARRATIVE: CASE EVENT DATE: 20211112
